FAERS Safety Report 13474286 (Version 2)
Quarter: 2017Q4

REPORT INFORMATION
  Report Type: Spontaneous
  Country: CA (occurrence: CA)
  Receive Date: 20170424
  Receipt Date: 20171227
  Transmission Date: 20180320
  Serious: Yes (Disabling, Other)
  Sender: FDA-Public Use
  Company Number: CA-ABBVIE-17P-028-1952241-00

PATIENT
  Sex: Female

DRUGS (2)
  1. RESTASIS [Suspect]
     Active Substance: CYCLOSPORINE
     Indication: DRY EYE
     Dosage: UNK
     Route: 061
  2. TRANDOLAPRIL. [Suspect]
     Active Substance: TRANDOLAPRIL
     Indication: HYPERTENSION
     Dosage: 1 DF, QD
     Route: 048

REACTIONS (1)
  - Retinal haemorrhage [Not Recovered/Not Resolved]
